FAERS Safety Report 8803020 (Version 1)
Quarter: 2012Q4

REPORT INFORMATION
  Report Type: Report from Study
  Country: CA (occurrence: CA)
  Receive Date: 20120924
  Receipt Date: 20120924
  Transmission Date: 20130627
  Serious: Yes (Other)
  Sender: FDA-Public Use
  Company Number: CA-JNJFOC-20120705733

PATIENT
  Age: 67 Year
  Sex: Female
  Weight: 70 kg

DRUGS (7)
  1. REMICADE [Suspect]
     Indication: CROHN^S DISEASE
     Route: 042
     Dates: start: 20090508
  2. IMURAN [Concomitant]
     Route: 065
  3. CALCIUM [Concomitant]
     Route: 065
  4. VITAMIN D W/ CALCIUM [Concomitant]
     Route: 065
  5. XALATAN [Concomitant]
     Route: 047
  6. IRON [Concomitant]
     Indication: MEDICAL DIET
     Route: 065
  7. ALL OTHER THERAPEUTICS [Concomitant]
     Indication: MEDICAL DIET
     Route: 065

REACTIONS (5)
  - Cataract [Unknown]
  - Mouth ulceration [Recovered/Resolved]
  - Oropharyngeal pain [Recovered/Resolved]
  - Diarrhoea [Recovered/Resolved]
  - Fatigue [Recovered/Resolved]
